FAERS Safety Report 8267188-6 (Version None)
Quarter: 2012Q2

REPORT INFORMATION
  Report Type: 
  Country: None (occurrence: None)
  Receive Date: 20120404
  Receipt Date: 20120322
  Transmission Date: 20120825
  Serious: Yes (Hospitalization)
  Sender: FDA-Public Use
  Company Number: DSJ-2012-05654

PATIENT
  Age: 6 Decade
  Sex: Male

DRUGS (7)
  1. CHLORAMPHENICOL [Suspect]
     Indication: PROSTATITIS
     Dosage: ,PER ORAL
     Route: 048
     Dates: start: 20100101, end: 20100101
  2. HYDROCHLOROTHIAZIDE/AMILORIDE(HYDROCHLOROTHIAZIDE, AMILORIDE HYDROCHLO [Suspect]
     Indication: HYPERTENSION
     Dosage: 25MG/12.5MG,PER ORAL
     Route: 048
     Dates: start: 20090101, end: 20111201
  3. AMLODIPINE BESYLATE AND OLMESARTAN MEDOXOMIL [Suspect]
     Indication: HYPERTENSION
     Dosage: 20/5MG (1 IN 1 D),PER ORAL,  40/5MG (1 IN 1 D),PER ORAL
     Route: 048
     Dates: start: 20090101, end: 20120321
  4. AMLODIPINE BESYLATE AND OLMESARTAN MEDOXOMIL [Suspect]
     Indication: HYPERTENSION
     Dosage: 20/5MG (1 IN 1 D),PER ORAL,  40/5MG (1 IN 1 D),PER ORAL
     Route: 048
     Dates: start: 20120322
  5. DIURETIC MEDICINE(HYDROCHLOROTHIAZIDE)(HYDROCHLOROTHIAZIDE) [Concomitant]
  6. METFORMIN/SITAGLIPTIN(METFORMIN AND SITAGLIPTIN)(METFORMIN AND SITAGLI [Concomitant]
  7. DICLOFENAC SODIUM [Suspect]
     Indication: PROSTATITIS
     Dosage: ,PER ORAL
     Route: 048
     Dates: start: 20100101, end: 20100101

REACTIONS (2)
  - DRUG INEFFECTIVE [None]
  - PROSTATITIS [None]
